FAERS Safety Report 6902479-X (Version None)
Quarter: 2010Q3

REPORT INFORMATION
  Report Type: 
  Country: None (occurrence: None)
  Receive Date: 20100802
  Receipt Date: 20100802
  Transmission Date: 20110219
  Serious: Yes (Other)
  Sender: FDA-Public Use
  Company Number: None

PATIENT
  Age: 32 Year
  Sex: Female
  Weight: 59.8748 kg

DRUGS (1)
  1. ULTRACET [Suspect]
     Dosage: 37.5/325MG

REACTIONS (3)
  - ABDOMINAL DISCOMFORT [None]
  - MALAISE [None]
  - RASH [None]
